FAERS Safety Report 16190264 (Version 1)
Quarter: 2019Q2

REPORT INFORMATION
  Report Type: Spontaneous
  Country: GB (occurrence: GB)
  Receive Date: 20190412
  Receipt Date: 20190412
  Transmission Date: 20190711
  Serious: Yes (Other)
  Sender: FDA-Public Use
  Company Number: GB-ELI_LILLY_AND_COMPANY-GB201904002111

PATIENT
  Age: 27 Year
  Sex: Female

DRUGS (2)
  1. FLUOXETINE [Suspect]
     Active Substance: FLUOXETINE HYDROCHLORIDE
     Indication: ANXIETY
     Dosage: 40 MG, DAILY
     Route: 048
     Dates: start: 20180501, end: 20190201
  2. MICROGYNON [ETHINYLESTRADIOL;LEVONORGESTREL] [Concomitant]
     Active Substance: ETHINYL ESTRADIOL\LEVONORGESTREL
     Dosage: UNK, UNKNOWN
     Route: 065

REACTIONS (3)
  - Urticaria [Recovered/Resolved]
  - Paraesthesia [Unknown]
  - Maternal exposure during pregnancy [Unknown]
